FAERS Safety Report 4854345-1 (Version None)
Quarter: 2005Q4

REPORT INFORMATION
  Report Type: 
  Country: None (occurrence: None)
  Receive Date: 20051214
  Receipt Date: 20051214
  Transmission Date: 20060501
  Serious: No
  Sender: FDA-Public Use
  Company Number: None

PATIENT
  Age: 78 Year
  Sex: Male
  Weight: 93.5 kg

DRUGS (1)
  1. BRIMONIDINE TARTRATE [Suspect]
     Indication: GLAUCOMA
     Dosage: 0.15% 1 GT OUQ8H
     Dates: start: 20041215, end: 20050907

REACTIONS (2)
  - CONJUNCTIVITIS ALLERGIC [None]
  - INSTILLATION SITE REACTION [None]
